FAERS Safety Report 21820869 (Version 1)
Quarter: 2023Q1

REPORT INFORMATION
  Report Type: Spontaneous
  Country: US (occurrence: US)
  Receive Date: 20230105
  Receipt Date: 20230105
  Transmission Date: 20230418
  Serious: Yes (Hospitalization)
  Sender: FDA-Public Use
  Company Number: US-drreddys-LIT/USA/22/0159321

PATIENT
  Age: 53 Year
  Sex: Female

DRUGS (4)
  1. PREGABALIN [Interacting]
     Active Substance: PREGABALIN
     Indication: Generalised anxiety disorder
  2. DULOXETINE [Interacting]
     Active Substance: DULOXETINE
     Indication: Generalised anxiety disorder
  3. DULOXETINE [Interacting]
     Active Substance: DULOXETINE
  4. DULOXETINE [Interacting]
     Active Substance: DULOXETINE

REACTIONS (2)
  - Priapism [Recovering/Resolving]
  - Drug interaction [Unknown]
